FAERS Safety Report 9246227 (Version 1)
Quarter: 2013Q2

REPORT INFORMATION
  Report Type: Spontaneous
  Country: US (occurrence: US)
  Receive Date: 20130422
  Receipt Date: 20130422
  Transmission Date: 20140414
  Serious: No
  Sender: FDA-Public Use
  Company Number: US-009507513-1304USA008065

PATIENT
  Age: 45 Year
  Sex: Female

DRUGS (4)
  1. STROMECTOL [Suspect]
     Indication: ACARODERMATITIS
     Dosage: 5 PILLS(EXACT DOSE UNKNOWN)/EVERY FIVE DAYS
     Route: 048
     Dates: start: 201210, end: 201210
  2. STROMECTOL [Suspect]
     Dosage: 5 PILLS(EXACT DOSE UNKNOWN)/EVERY FIVE DAYS
     Route: 048
     Dates: start: 201212, end: 201301
  3. STROMECTOL [Suspect]
     Dosage: 5 PILLS(EXACT DOSE UNKNOWN)/EVERY FIVE DAYS
     Route: 048
     Dates: start: 201303
  4. DOXYCYCLINE [Concomitant]

REACTIONS (1)
  - Drug ineffective [Not Recovered/Not Resolved]
